FAERS Safety Report 12394513 (Version 2)
Quarter: 2016Q2

REPORT INFORMATION
  Report Type: Spontaneous
  Country: US (occurrence: US)
  Receive Date: 20160523
  Receipt Date: 20160613
  Transmission Date: 20160815
  Serious: No
  Sender: FDA-Public Use
  Company Number: US-PFIZER INC-2016264640

PATIENT
  Age: 69 Year
  Sex: Male

DRUGS (4)
  1. PRAVASTATIN [Suspect]
     Active Substance: PRAVASTATIN\PRAVASTATIN SODIUM
     Dosage: UNK
  2. NEURONTIN [Suspect]
     Active Substance: GABAPENTIN
     Dosage: UNK
  3. ATORVASTATIN CALCIUM. [Suspect]
     Active Substance: ATORVASTATIN CALCIUM
     Dosage: UNK
  4. FORMALDEHYDE. [Suspect]
     Active Substance: FORMALDEHYDE
     Dosage: UNK

REACTIONS (1)
  - Drug hypersensitivity [Unknown]
